FAERS Safety Report 26202330 (Version 1)
Quarter: 2025Q4

REPORT INFORMATION
  Report Type: Spontaneous
  Country: US (occurrence: US)
  Receive Date: 20251226
  Receipt Date: 20251226
  Transmission Date: 20260117
  Serious: No
  Sender: GLAXOSMITHKLINE
  Company Number: US-GSK-US2025165866

PATIENT
  Sex: Female
  Weight: 35 kg

DRUGS (1)
  1. BENLYSTA [Suspect]
     Active Substance: BELIMUMAB
     Indication: Systemic lupus erythematosus
     Dosage: 200 MG, Q2W
     Dates: start: 202511

REACTIONS (2)
  - Product storage error [Unknown]
  - Product use issue [Unknown]
